FAERS Safety Report 24198251 (Version 3)
Quarter: 2025Q1

REPORT INFORMATION
  Report Type: Spontaneous
  Country: US (occurrence: US)
  Receive Date: 20240812
  Receipt Date: 20250128
  Transmission Date: 20250409
  Serious: No
  Sender: ASTELLAS
  Company Number: US-ASTELLAS-2024US014887

PATIENT
  Sex: Female

DRUGS (1)
  1. VEOZAH [Suspect]
     Active Substance: FEZOLINETANT
     Indication: Hot flush
     Dosage: 45 MG, ONCE DAILY
     Route: 048

REACTIONS (1)
  - Liver function test increased [Unknown]
